FAERS Safety Report 6097873-6 (Version None)
Quarter: 2009Q1

REPORT INFORMATION
  Report Type: 
  Country: None (occurrence: None)
  Receive Date: 20090225
  Receipt Date: 20090211
  Transmission Date: 20090719
  Serious: Yes (Hospitalization)
  Sender: FDA-Public Use
  Company Number: 2009AL000914

PATIENT
  Age: 30 Year
  Sex: Female

DRUGS (4)
  1. IBUPROFEN [Suspect]
     Indication: PLANTAR FASCIITIS
  2. CLOTRIMAZOLE [Suspect]
     Indication: CANDIDIASIS
     Dosage: 200 MG; QD; VAG
     Route: 067
  3. DOXYCYCLINE [Concomitant]
  4. SPORANOX [Concomitant]

REACTIONS (6)
  - CANDIDIASIS [None]
  - CONDITION AGGRAVATED [None]
  - DRUG EXPOSURE DURING PREGNANCY [None]
  - PELVIC PAIN [None]
  - PLANTAR FASCIITIS [None]
  - PUBIC PAIN [None]
